FAERS Safety Report 8805824 (Version 1)
Quarter: 2012Q4

REPORT INFORMATION
  Report Type: Spontaneous
  Country: KR (occurrence: None)
  Receive Date: 20120917
  Receipt Date: 20120917
  Transmission Date: 20130627
  Serious: Yes (Hospitalization)
  Sender: FDA-Public Use
  Company Number: DSA_59427_2012

PATIENT
  Age: 76 Year
  Sex: Male

DRUGS (3)
  1. METRONIDAZOLE [Suspect]
     Indication: COLITIS ISCHAEMIC
  2. CEFTRIAXONE [Concomitant]
  3. SOLUTIONS FOR PARENTERAL NUTRITION [Concomitant]

REACTIONS (3)
  - Toxic encephalopathy [None]
  - Cerebral atrophy [None]
  - Carotid artery stenosis [None]
